FAERS Safety Report 23673015 (Version 2)
Quarter: 2025Q3

REPORT INFORMATION
  Report Type: Spontaneous
  Country: EU (occurrence: EU)
  Receive Date: 20240326
  Receipt Date: 20250730
  Transmission Date: 20251021
  Serious: Yes (Other)
  Sender: RANBAXY
  Company Number: EU-AEMPS-1465857

PATIENT
  Age: 89 Year
  Sex: Female

DRUGS (8)
  1. DONEPEZIL [Suspect]
     Active Substance: DONEPEZIL
     Indication: Cognitive disorder
     Route: 048
     Dates: start: 20231207
  2. DONEPEZIL [Suspect]
     Active Substance: DONEPEZIL
     Dosage: 10 MILLIGRAM, QD
     Route: 065
     Dates: start: 20231129, end: 20231206
  3. DONEPEZIL [Suspect]
     Active Substance: DONEPEZIL
     Dosage: 5 MILLIGRAM, QD
     Route: 048
     Dates: start: 20230510, end: 20231128
  4. DEPRAX [Concomitant]
     Indication: Product used for unknown indication
     Dosage: 100 MILLIGRAM, QD
     Route: 048
     Dates: start: 20230511
  5. METFORMIN HYDROCHLORIDE\SITAGLIPTIN PHOSPHATE [Concomitant]
     Active Substance: METFORMIN HYDROCHLORIDE\SITAGLIPTIN PHOSPHATE
     Indication: Product used for unknown indication
     Dosage: 1 DOSAGE FORM, QD
     Route: 048
     Dates: start: 20231020
  6. LEVOTHYROXINE SODIUM [Concomitant]
     Active Substance: LEVOTHYROXINE SODIUM
     Indication: Product used for unknown indication
     Dosage: 88 MCG, QD
     Route: 048
     Dates: start: 20150218
  7. PREGABALIN [Concomitant]
     Active Substance: PREGABALIN
     Indication: Product used for unknown indication
     Dosage: 75 MILLIGRAM, DAILY
     Route: 048
     Dates: start: 20190527
  8. ENALAPRIL MALEATE\HYDROCHLOROTHIAZIDE [Concomitant]
     Active Substance: ENALAPRIL MALEATE\HYDROCHLOROTHIAZIDE
     Indication: Product used for unknown indication
     Dosage: 1 DOSAGE FORM, QD
     Route: 048
     Dates: start: 20160125

REACTIONS (2)
  - Tremor [Recovered/Resolved]
  - Hallucination, visual [Recovered/Resolved]

NARRATIVE: CASE EVENT DATE: 20231129
